FAERS Safety Report 7995251-3 (Version None)
Quarter: 2011Q4

REPORT INFORMATION
  Report Type: 
  Country: None (occurrence: None)
  Receive Date: 20111220
  Receipt Date: 20111220
  Transmission Date: 20120403
  Serious: No
  Sender: FDA-Public Use
  Company Number: None

PATIENT
  Age: 97 Year
  Sex: Female
  Weight: 45.359 kg

DRUGS (2)
  1. DIVALPROEX EXTENDED-RELEASE [Suspect]
     Indication: NERVOUSNESS
     Dates: start: 20070307, end: 20111219
  2. DIVALPOEX CP [Concomitant]
     Indication: NERVOUSNESS
     Dates: start: 20070107, end: 20111219

REACTIONS (1)
  - DRUG INEFFECTIVE [None]
